FAERS Safety Report 5416766-8 (Version None)
Quarter: 2007Q3

REPORT INFORMATION
  Report Type: 
  Country: None (occurrence: None)
  Receive Date: 20070814
  Receipt Date: 20070730
  Transmission Date: 20080115
  Serious: Yes (Disabling)
  Sender: FDA-Public Use
  Company Number: 6036326

PATIENT
  Sex: Female

DRUGS (1)
  1. BISOPROLOL FUMARATE [Suspect]
     Indication: DRUG USE FOR UNKNOWN INDICATION
     Dosage: 2,500 MG (2, 5 MG, 1 IN 1 D) ORAL; 1,2500 MG (1, 25 MG, 1 IN 1 D) ORAL
     Route: 048

REACTIONS (2)
  - BLINDNESS [None]
  - MACULAR HOLE [None]
